FAERS Safety Report 23306385 (Version 1)
Quarter: 2023Q4

REPORT INFORMATION
  Report Type: Spontaneous
  Country: NL (occurrence: NL)
  Receive Date: 20231218
  Receipt Date: 20231218
  Transmission Date: 20240110
  Serious: Yes (Death, Hospitalization, Other)
  Sender: FDA-Public Use
  Company Number: NL-AJANTA-2023AJA00269

PATIENT
  Age: 55 Year
  Sex: Female
  Weight: 125 kg

DRUGS (4)
  1. METFORMIN HYDROCHLORIDE [Suspect]
     Active Substance: METFORMIN HYDROCHLORIDE
     Indication: Product used for unknown indication
     Dosage: 165 TABLETS (660 MG/KG)
     Route: 048
  2. ACETAMINOPHEN [Suspect]
     Active Substance: ACETAMINOPHEN
     Indication: Product used for unknown indication
     Dosage: 20 TABLETS ( 80 MG/KG)
     Route: 048
  3. SIMVASTATIN [Suspect]
     Active Substance: SIMVASTATIN
     Indication: Product used for unknown indication
     Dosage: 38 TABLETS (12 MG/KG)
     Route: 048
  4. SEMAGLUTIDE [Suspect]
     Active Substance: SEMAGLUTIDE
     Indication: Product used for unknown indication
     Dosage: 30 TABLETS (3.4 MG/KG)
     Route: 048

REACTIONS (5)
  - Distributive shock [Fatal]
  - Suicide attempt [Fatal]
  - Overdose [Fatal]
  - Toxicity to various agents [Fatal]
  - Lactic acidosis [Fatal]
